FAERS Safety Report 5553369-9 (Version None)
Quarter: 2007Q4

REPORT INFORMATION
  Report Type: 
  Country: None (occurrence: None)
  Receive Date: 20071128
  Receipt Date: 20070523
  Transmission Date: 20080405
  Serious: Yes (Other)
  Sender: FDA-Public Use
  Company Number: CIP07000565

PATIENT
  Age: 83 Year
  Sex: Female
  Weight: 52.2 kg

DRUGS (24)
  1. ACTONEL [Suspect]
     Indication: OSTEOPOROSIS
     Dosage: 1 TABLET EVERY SATURDAY MORNING, ORAL
     Route: 048
  2. PREDNISONE TAB [Suspect]
     Indication: ARTHRALGIA
     Dosage: SEE IMAGE
     Dates: start: 20041103, end: 20041112
  3. PREDNISONE TAB [Suspect]
     Indication: ARTHRALGIA
     Dosage: SEE IMAGE
     Dates: start: 20041113, end: 20041122
  4. PREDNISONE TAB [Suspect]
     Indication: ARTHRALGIA
     Dosage: SEE IMAGE
     Dates: start: 20041123, end: 20041202
  5. PREDNISONE TAB [Suspect]
     Indication: ARTHRALGIA
     Dosage: SEE IMAGE
     Dates: start: 20041203, end: 20041217
  6. PREDNISONE TAB [Suspect]
     Indication: ARTHRALGIA
     Dosage: SEE IMAGE
     Dates: start: 20041218, end: 20041231
  7. PREDNISONE TAB [Suspect]
     Indication: ARTHRALGIA
     Dosage: SEE IMAGE
     Dates: start: 20041231, end: 20050114
  8. PREDNISONE TAB [Suspect]
     Indication: ARTHRALGIA
     Dosage: SEE IMAGE
     Dates: start: 20050115, end: 20050128
  9. PREDNISONE TAB [Suspect]
     Indication: ARTHRALGIA
     Dosage: SEE IMAGE
     Dates: start: 20050128
  10. PROTONIX /01263201/ (PANTOPRAZOLE) [Concomitant]
  11. ARAVA /00058103/ (METARAMINOL TARTRATE) [Concomitant]
  12. BEXTRA /01400702/ (PARECOXIB SODIUM) [Concomitant]
  13. HYDROXYCHLOROQUINE SULFATE [Concomitant]
  14. GLUCOSAMINE + CHONDROITIN (CHONDROITIN SULFATE, GLUCOSAMINE) [Concomitant]
  15. MICRO-K (POTASSIUM CHLORIDE) [Concomitant]
  16. DIURETICS [Concomitant]
  17. CALCIUM VIT D (CALCIUM, COLECALCIFEROL) [Concomitant]
  18. IRON (IRON) [Concomitant]
  19. KU-ZYME (PROTEASE, LIPASE, FACTOR X (STUART PROWER FACTOR), FACTOR VII [Concomitant]
  20. MIACALCIN [Concomitant]
  21. ICAPS (VITAMINS NOS, MINERALS NOS) [Concomitant]
  22. MULTIVITAMIN /00831701/ (VITAMINS NOS) [Concomitant]
  23. ASPIRIN [Concomitant]
  24. OPHTHALMOLOGICALS [Concomitant]

REACTIONS (6)
  - ABSCESS ORAL [None]
  - BONE EROSION [None]
  - EXCESSIVE GRANULATION TISSUE [None]
  - ORAL CANDIDIASIS [None]
  - OSTEONECROSIS [None]
  - OSTEOSCLEROSIS [None]
